FAERS Safety Report 6358169-8 (Version None)
Quarter: 2009Q3

REPORT INFORMATION
  Report Type: 
  Country: None (occurrence: None)
  Receive Date: 20090916
  Receipt Date: 20090907
  Transmission Date: 20100115
  Serious: Yes (Hospitalization)
  Sender: FDA-Public Use
  Company Number: JP-ASTRAZENECA-2009SE12818

PATIENT
  Age: 18 Year
  Sex: Female

DRUGS (6)
  1. SEROQUEL [Suspect]
     Route: 048
  2. RISPERDAL [Suspect]
     Route: 048
  3. SOLANAX [Suspect]
     Route: 048
  4. AKINETON [Suspect]
     Route: 048
  5. IBUPROFEN [Concomitant]
     Route: 048
  6. SG [Concomitant]
     Route: 065

REACTIONS (9)
  - ALTERED STATE OF CONSCIOUSNESS [None]
  - BLOOD CREATINE PHOSPHOKINASE INCREASED [None]
  - DISSEMINATED INTRAVASCULAR COAGULATION [None]
  - HYPOTONIA [None]
  - LIVER DISORDER [None]
  - MEDICATION ERROR [None]
  - PNEUMONIA ASPIRATION [None]
  - PYREXIA [None]
  - URTICARIA [None]
